FAERS Safety Report 18308505 (Version 1)
Quarter: 2020Q3

REPORT INFORMATION
  Report Type: Report from Study
  Country: GB (occurrence: GB)
  Receive Date: 20200924
  Receipt Date: 20200924
  Transmission Date: 20201103
  Serious: Yes (Other)
  Sender: FDA-Public Use
  Company Number: NVSC2020GB258700

PATIENT
  Sex: Female

DRUGS (1)
  1. COSENTYX [Suspect]
     Active Substance: SECUKINUMAB
     Indication: PSORIATIC ARTHROPATHY
     Dosage: 300 MG, QMO
     Route: 058
     Dates: start: 20200102

REACTIONS (5)
  - Drug ineffective [Unknown]
  - Headache [Not Recovered/Not Resolved]
  - Encephalitis [Unknown]
  - Meningitis [Unknown]
  - Optic neuritis [Unknown]
